FAERS Safety Report 4656553-1 (Version None)
Quarter: 2005Q2

REPORT INFORMATION
  Report Type: 
  Country: None (occurrence: None)
  Receive Date: 20050506
  Receipt Date: 20050428
  Transmission Date: 20051028
  Serious: Yes (Other)
  Sender: FDA-Public Use
  Company Number: 2005060852

PATIENT
  Age: 60 Year
  Sex: Female

DRUGS (7)
  1. NORVASC [Suspect]
     Indication: HYPERTENSION
     Dosage: 2.5 MG (2.5 MG, QD INTERVAL), ORAL; 2.5 MG (2.5 MG, QD), ORAL; 2.5 MG (2.5 MG, QD), ORAL
     Route: 048
     Dates: start: 20050307, end: 20050317
  2. NORVASC [Suspect]
     Indication: HYPERTENSION
     Dosage: 2.5 MG (2.5 MG, QD INTERVAL), ORAL; 2.5 MG (2.5 MG, QD), ORAL; 2.5 MG (2.5 MG, QD), ORAL
     Route: 048
     Dates: start: 20050330, end: 20050407
  3. NORVASC [Suspect]
     Indication: HYPERTENSION
     Dosage: 2.5 MG (2.5 MG, QD INTERVAL), ORAL; 2.5 MG (2.5 MG, QD), ORAL; 2.5 MG (2.5 MG, QD), ORAL
     Route: 048
     Dates: start: 20050410
  4. CARDENALIN (DOXAZOSIN) [Suspect]
     Indication: HYPERTENSION
     Dosage: 2 MG (2 MG, QD), ORAL
     Route: 048
     Dates: start: 20050408, end: 20050409
  5. AMLODIPINE BESYLATE [Concomitant]
  6. MOSAPRIDE CITRATE (MOSAPRIDE CITRATE) [Concomitant]
  7. NIZATIDINE [Concomitant]

REACTIONS (7)
  - ABSCESS [None]
  - DYSPNOEA [None]
  - OEDEMA [None]
  - POLLAKIURIA [None]
  - RESPIRATORY DISORDER [None]
  - SENSATION OF FOREIGN BODY [None]
  - TACHYCARDIA [None]
